FAERS Safety Report 19802269 (Version 1)
Quarter: 2021Q3

REPORT INFORMATION
  Report Type: Spontaneous
  Country: PT (occurrence: PT)
  Receive Date: 20210908
  Receipt Date: 20210908
  Transmission Date: 20211014
  Serious: Yes (Other)
  Sender: FDA-Public Use
  Company Number: PT-SUN PHARMACEUTICAL INDUSTRIES LTD-2021R1-310294

PATIENT
  Age: 63 Year
  Sex: Female

DRUGS (3)
  1. DOBUTAMINE [Suspect]
     Active Substance: DOBUTAMINE HYDROCHLORIDE
     Indication: HYPOVOLAEMIC SHOCK
     Dosage: UNK
     Route: 065
  2. ADRENALINE [Suspect]
     Active Substance: EPINEPHRINE
     Indication: HYPOVOLAEMIC SHOCK
     Dosage: UNK
     Route: 065
  3. NORADRENALINE [Suspect]
     Active Substance: NOREPINEPHRINE
     Indication: HYPOVOLAEMIC SHOCK
     Dosage: UNK
     Route: 065

REACTIONS (5)
  - Acid base balance abnormal [Unknown]
  - Acute kidney injury [Unknown]
  - Mental status changes [Unknown]
  - Hypotension [Unknown]
  - Respiratory failure [Unknown]
